FAERS Safety Report 9601187 (Version 2)
Quarter: 2014Q1

REPORT INFORMATION
  Report Type: Report from Study
  Country: US (occurrence: US)
  Receive Date: 20131005
  Receipt Date: 20140127
  Transmission Date: 20141002
  Serious: Yes (Death, Other)
  Sender: FDA-Public Use
  Company Number: US-ROCHE-1284910

PATIENT
  Sex: 0

DRUGS (1)
  1. RITUXIMAB [Suspect]
     Indication: ANTI-NEUTROPHIL CYTOPLASMIC ANTIBODY POSITIVE VASCULITIS
     Dosage: FREQUENCY: ONCE WEEKLY TIMES FOUR
     Route: 065

REACTIONS (3)
  - Pulmonary alveolar haemorrhage [Fatal]
  - Colon cancer metastatic [Unknown]
  - Sinusitis [Unknown]
